FAERS Safety Report 22245767 (Version 2)
Quarter: 2023Q2

REPORT INFORMATION
  Report Type: Spontaneous
  Country: JP (occurrence: None)
  Receive Date: 20230424
  Receipt Date: 20230530
  Transmission Date: 20230721
  Serious: Yes (Hospitalization)
  Sender: FDA-Public Use
  Company Number: JP-Merck Healthcare KGaA-9397915

PATIENT
  Age: 89 Year
  Sex: Female

DRUGS (2)
  1. METGLUCO [Suspect]
     Active Substance: METFORMIN HYDROCHLORIDE
     Indication: Product used for unknown indication
     Route: 048
  2. IMEGLIMIN [Suspect]
     Active Substance: IMEGLIMIN
     Indication: Type 2 diabetes mellitus
     Route: 048

REACTIONS (2)
  - Pneumonia [Unknown]
  - Nausea [Recovered/Resolved]
